FAERS Safety Report 14114754 (Version 1)
Quarter: 2017Q4

REPORT INFORMATION
  Report Type: Spontaneous
  Country: US (occurrence: US)
  Receive Date: 20171023
  Receipt Date: 20171023
  Transmission Date: 20180321
  Serious: No
  Sender: FDA-Public Use
  Company Number: US-GLAXOSMITHKLINE-US2017161292

PATIENT
  Age: 62 Year
  Sex: Male

DRUGS (11)
  1. AVODART [Suspect]
     Active Substance: DUTASTERIDE
     Indication: DYSURIA
  2. IRON [Concomitant]
     Active Substance: IRON
  3. PUMPKIN SEED [Concomitant]
     Active Substance: PUMPKIN SEED
  4. ASPIRIN. [Concomitant]
     Active Substance: ASPIRIN
  5. BUPROPION. [Concomitant]
     Active Substance: BUPROPION
  6. FISH OIL [Concomitant]
     Active Substance: FISH OIL
  7. AVODART [Suspect]
     Active Substance: DUTASTERIDE
     Indication: PROSTATOMEGALY
     Dosage: 0.5 MG, QD
     Route: 048
     Dates: start: 2007, end: 201605
  8. DUTASTERIDE CAPSULE [Suspect]
     Active Substance: DUTASTERIDE
     Indication: PROSTATOMEGALY
     Dosage: 0.5 MG, QD
     Route: 048
     Dates: start: 201605, end: 201705
  9. DUTASTERIDE CAPSULE [Suspect]
     Active Substance: DUTASTERIDE
     Indication: DYSURIA
  10. VIAGRA [Concomitant]
     Active Substance: SILDENAFIL CITRATE
  11. VITAMIN E [Concomitant]
     Active Substance: .ALPHA.-TOCOPHEROL

REACTIONS (4)
  - Rash [Recovered/Resolved]
  - Erectile dysfunction [Not Recovered/Not Resolved]
  - Breast enlargement [Recovering/Resolving]
  - Dizziness [Recovered/Resolved]

NARRATIVE: CASE EVENT DATE: 2014
